FAERS Safety Report 8289523-5 (Version None)
Quarter: 2012Q2

REPORT INFORMATION
  Report Type: 
  Country: None (occurrence: None)
  Receive Date: 20120417
  Receipt Date: 20120411
  Transmission Date: 20120825
  Serious: Yes (Other)
  Sender: FDA-Public Use
  Company Number: GB-PFIZER INC-2012089849

PATIENT
  Age: 67 Year
  Sex: Female
  Weight: 65 kg

DRUGS (2)
  1. METRONIDAZOLE [Suspect]
     Indication: PERIODONTITIS
     Dosage: 200 MG, UNK
     Route: 048
     Dates: start: 20120319, end: 20120322
  2. RAMIPRIL [Concomitant]

REACTIONS (3)
  - RASH ERYTHEMATOUS [None]
  - HYPERSENSITIVITY [None]
  - SKIN DISCOLOURATION [None]
